FAERS Safety Report 4911262-6 (Version None)
Quarter: 2006Q1

REPORT INFORMATION
  Report Type: 
  Country: None (occurrence: None)
  Receive Date: 20060113
  Receipt Date: 20050817
  Transmission Date: 20060701
  Serious: No
  Sender: FDA-Public Use
  Company Number: HQWYE016919AUG05

PATIENT
  Age: 62 Year
  Sex: Female
  Weight: 70.37 kg

DRUGS (4)
  1. PREMPRO [Suspect]
     Indication: HOT FLUSH
     Dosage: 0.625/2.5 MG DAILY, 0.45/1.5 MG DAILY, ORAL ; 0.45/1.5MG EVERY OTHER DAY, ORAL
     Route: 048
     Dates: start: 20050101, end: 20050701
  2. PREMPRO [Suspect]
     Indication: HOT FLUSH
     Dosage: 0.625/2.5 MG DAILY, 0.45/1.5 MG DAILY, ORAL ; 0.45/1.5MG EVERY OTHER DAY, ORAL
     Route: 048
  3. PREMPRO [Suspect]
     Indication: HOT FLUSH
     Dosage: 0.625/2.5 MG DAILY, 0.45/1.5 MG DAILY, ORAL ; 0.45/1.5MG EVERY OTHER DAY, ORAL
     Route: 048
  4. ATENOLOL [Concomitant]

REACTIONS (3)
  - HEADACHE [None]
  - NAUSEA [None]
  - NIGHT SWEATS [None]
